FAERS Safety Report 6865450-2 (Version None)
Quarter: 2010Q3

REPORT INFORMATION
  Report Type: 
  Country: None (occurrence: None)
  Receive Date: 20100721
  Receipt Date: 20100715
  Transmission Date: 20110219
  Serious: Yes (Death)
  Sender: FDA-Public Use
  Company Number: US-AMGEN-QUU424846

PATIENT
  Sex: Female

DRUGS (3)
  1. NPLATE [Suspect]
     Indication: IDIOPATHIC THROMBOCYTOPENIC PURPURA
     Dates: start: 20090919
  2. IMMU-G [Concomitant]
     Route: 042
     Dates: start: 20071201, end: 20090901
  3. PREDNISONE [Concomitant]

REACTIONS (1)
  - DIABETIC COMPLICATION [None]
